FAERS Safety Report 14695823 (Version 5)
Quarter: 2020Q3

REPORT INFORMATION
  Report Type: Report from Study
  Country: US (occurrence: US)
  Receive Date: 20180329
  Receipt Date: 20200709
  Transmission Date: 20201102
  Serious: Yes (Hospitalization)
  Sender: FDA-Public Use
  Company Number: US-ACTELION-A-NJ2018-169872

PATIENT
  Age: 72 Year
  Sex: Female
  Weight: 78.01 kg

DRUGS (4)
  1. WARFARIN [Concomitant]
     Active Substance: WARFARIN
  2. FAMOTIDINE. [Suspect]
     Active Substance: FAMOTIDINE
     Indication: PRODUCT USED FOR UNKNOWN INDICATION
     Dosage: 5 MG/ML
     Route: 065
  3. OPSUMIT [Suspect]
     Active Substance: MACITENTAN
     Indication: PULMONARY HYPERTENSION
     Dosage: 10 MG, QD
     Route: 048
  4. REMODULIN [Suspect]
     Active Substance: TREPROSTINIL
     Indication: PULMONARY HYPERTENSION
     Dosage: .034 UG/KG
     Route: 048
     Dates: start: 20160727

REACTIONS (7)
  - Condition aggravated [Unknown]
  - Knee arthroplasty [Unknown]
  - Treatment noncompliance [Unknown]
  - Dyspnoea exertional [Unknown]
  - Infusion site induration [Unknown]
  - Aphonia [Unknown]
  - Catheter site infection [Unknown]

NARRATIVE: CASE EVENT DATE: 20200619
